FAERS Safety Report 6411381-1 (Version None)
Quarter: 2009Q4

REPORT INFORMATION
  Report Type: 
  Country: None (occurrence: None)
  Receive Date: 20091023
  Receipt Date: 20091013
  Transmission Date: 20100525
  Serious: Yes (Other)
  Sender: FDA-Public Use
  Company Number: US-WYE-H11577409

PATIENT
  Sex: Female
  Weight: 92.62 kg

DRUGS (4)
  1. EFFEXOR XR [Suspect]
     Indication: DEPRESSION
     Route: 048
     Dates: start: 20060601, end: 20080601
  2. EFFEXOR XR [Suspect]
     Route: 048
     Dates: start: 20090101
  3. EFFEXOR XR [Suspect]
     Route: 048
     Dates: start: 20090101, end: 20090101
  4. CLONAZEPAM [Concomitant]
     Dosage: 2 MG HS

REACTIONS (5)
  - CONDITION AGGRAVATED [None]
  - DRUG EFFECT DECREASED [None]
  - HEADACHE [None]
  - MYASTHENIA GRAVIS [None]
  - NAUSEA [None]
